FAERS Safety Report 5184099-3 (Version None)
Quarter: 2006Q4

REPORT INFORMATION
  Report Type: 
  Country: None (occurrence: None)
  Receive Date: 20061220
  Receipt Date: 20060209
  Transmission Date: 20070319
  Serious: No
  Sender: FDA-Public Use
  Company Number: US-GLAXOSMITHKLINE-A0592985A

PATIENT
  Age: 68 Year
  Sex: Male

DRUGS (3)
  1. NICODERM CQ [Suspect]
  2. DUONEB [Concomitant]
  3. LORAZEPAM [Concomitant]

REACTIONS (1)
  - NICOTINE DEPENDENCE [None]
